FAERS Safety Report 5181499-2 (Version None)
Quarter: 2006Q4

REPORT INFORMATION
  Report Type: 
  Country: None (occurrence: None)
  Receive Date: 20061220
  Receipt Date: 20060123
  Transmission Date: 20070319
  Serious: No
  Sender: FDA-Public Use
  Company Number: US-GLAXOSMITHKLINE-A0590440A

PATIENT
  Age: 60 Year
  Sex: Female

DRUGS (3)
  1. COMMIT [Suspect]
     Dates: start: 20051210
  2. NICODERM CQ [Suspect]
  3. NICODERM CQ [Suspect]

REACTIONS (6)
  - ABDOMINAL PAIN UPPER [None]
  - BACK PAIN [None]
  - BLOOD GLUCOSE INCREASED [None]
  - MALAISE [None]
  - NICOTINE DEPENDENCE [None]
  - VOMITING [None]
